FAERS Safety Report 20222174 (Version 1)
Quarter: 2021Q4

REPORT INFORMATION
  Report Type: Report from Study
  Country: FR (occurrence: None)
  Receive Date: 20211223
  Receipt Date: 20211223
  Transmission Date: 20220303
  Serious: Yes (Hospitalization)
  Sender: FDA-Public Use
  Company Number: FR-Merck Healthcare KGaA-9288861

PATIENT
  Age: 55 Year
  Sex: Male
  Weight: 76 kg

DRUGS (9)
  1. XEVINAPANT [Suspect]
     Active Substance: XEVINAPANT
     Indication: Squamous cell carcinoma of head and neck
     Route: 050
     Dates: start: 20211115
  2. CISPLATIN [Suspect]
     Active Substance: CISPLATIN
     Indication: Squamous cell carcinoma of head and neck
     Route: 042
     Dates: start: 20211116, end: 20211116
  3. CISPLATIN [Suspect]
     Active Substance: CISPLATIN
     Route: 042
     Dates: start: 20211208, end: 20211208
  4. ACETAMINOPHEN [Concomitant]
     Active Substance: ACETAMINOPHEN
     Indication: Dysphagia
     Route: 048
     Dates: start: 202109
  5. PREDNISONE [Concomitant]
     Active Substance: PREDNISONE
     Indication: Prophylaxis of nausea and vomiting
     Dosage: D4 AND D5 OF EACH CURE
     Route: 048
     Dates: start: 20211118
  6. ACETAMINOPHEN\CODEINE PHOSPHATE [Concomitant]
     Active Substance: ACETAMINOPHEN\CODEINE PHOSPHATE
     Indication: Dysphagia
     Route: 048
     Dates: start: 20211115, end: 20211122
  7. POLYETHYLENE GLYCOLS [Concomitant]
     Active Substance: POLYETHYLENE GLYCOLS
     Indication: Prophylaxis
     Route: 048
     Dates: start: 20211115, end: 20211122
  8. MOVICOL [Concomitant]
     Active Substance: POLYETHYLENE GLYCOL 3350\POTASSIUM CHLORIDE\SODIUM BICARBONATE\SODIUM CHLORIDE
     Indication: Constipation
     Dates: start: 20211122
  9. NORMACOL SPECIAL [Concomitant]
     Indication: Constipation
     Route: 054
     Dates: start: 20211122

REACTIONS (1)
  - Oliguria [Recovered/Resolved]

NARRATIVE: CASE EVENT DATE: 20211207
